FAERS Safety Report 9249911 (Version 2)
Quarter: 2013Q2

REPORT INFORMATION
  Report Type: Spontaneous
  Country: US (occurrence: US)
  Receive Date: 20130423
  Receipt Date: 20130514
  Transmission Date: 20140414
  Serious: No
  Sender: FDA-Public Use
  Company Number: US-009507513-1304USA013305

PATIENT
  Age: 42 Year
  Sex: Female
  Weight: 63.49 kg

DRUGS (2)
  1. CLARITIN-D 24 HOUR [Suspect]
     Indication: SEASONAL ALLERGY
     Dosage: 10 MG, QD
     Route: 048
  2. CLARITIN-D 24 HOUR [Suspect]
     Indication: RESPIRATORY TRACT CONGESTION

REACTIONS (1)
  - Drug ineffective [Unknown]
